FAERS Safety Report 4648659-8 (Version None)
Quarter: 2005Q2

REPORT INFORMATION
  Report Type: 
  Country: None (occurrence: None)
  Receive Date: 20050427
  Receipt Date: 20050401
  Transmission Date: 20051028
  Serious: Yes (Hospitalization)
  Sender: FDA-Public Use
  Company Number: PAR_0010_2005

PATIENT
  Age: 59 Year
  Sex: Male

DRUGS (3)
  1. ISOPTIN [Suspect]
     Dosage: 8160 MG ONCE PO
     Route: 048
     Dates: start: 20050401, end: 20050401
  2. HCT HEXAL [Suspect]
     Dosage: 125 MG ONCE PO
     Route: 048
     Dates: start: 20050401, end: 20050401
  3. PANTOPRAZOLE SODIUM [Suspect]
     Dosage: 400 MG ONCE PO
     Route: 048
     Dates: start: 20050401, end: 20050401

REACTIONS (4)
  - BRADYCARDIA [None]
  - HYPOTENSION [None]
  - OVERDOSE [None]
  - SUICIDE ATTEMPT [None]
